FAERS Safety Report 7361796-2 (Version None)
Quarter: 2011Q1

REPORT INFORMATION
  Report Type: 
  Country: None (occurrence: None)
  Receive Date: 20110318
  Receipt Date: 20110309
  Transmission Date: 20110831
  Serious: Yes (Death, Hospitalization, Other)
  Sender: FDA-Public Use
  Company Number: US-CELGENEUS-163-21880-10092260

PATIENT
  Sex: Female

DRUGS (16)
  1. ZOFRAN [Concomitant]
     Indication: VOMITING
     Route: 051
  2. DECADRON [Concomitant]
     Dosage: 40 MILLIGRAM
     Route: 048
     Dates: start: 20100301
  3. PANTOPRAZOLE [Concomitant]
     Dosage: 4 MILLIGRAM
     Route: 048
  4. AMLODIPINE [Concomitant]
     Dosage: 5 MILLIGRAM
     Route: 048
     Dates: start: 20080101
  5. SEVELAMER [Concomitant]
     Dosage: 800 MILLIGRAM
     Route: 048
  6. REVLIMID [Suspect]
     Indication: MULTIPLE MYELOMA
     Dosage: 15 MILLIGRAM
     Route: 048
     Dates: start: 20100608, end: 20100801
  7. LATANOPROST [Concomitant]
     Dosage: 1 DROPS
     Route: 047
  8. DILAUDID [Concomitant]
     Dosage: MULTIPLE DOSES
     Route: 065
  9. ALLOPURINOL [Concomitant]
     Dosage: 300 MILLIGRAM
     Route: 048
     Dates: start: 20080101
  10. DECADRON [Concomitant]
     Dosage: 16 MILLIGRAM
     Route: 048
     Dates: start: 20100902
  11. FUROSEMIDE [Concomitant]
     Dosage: 20 MILLIGRAM
     Route: 051
  12. ZOFRAN [Concomitant]
     Indication: NAUSEA
     Dosage: 4 MILLIGRAM
     Route: 051
  13. SPIRONOLACTONE [Concomitant]
     Dosage: 25 MILLIGRAM
     Route: 048
  14. ASPIRIN [Concomitant]
     Dosage: 81 MILLIGRAM
     Route: 048
     Dates: start: 20050301
  15. WARFARIN SODIUM [Concomitant]
     Indication: ANTICOAGULANT THERAPY
     Dosage: 5 MILLIGRAM
     Route: 065
     Dates: end: 20100902
  16. FUROSEMIDE [Concomitant]
     Dosage: 40 MILLIGRAM
     Route: 048

REACTIONS (5)
  - ANAEMIA [None]
  - INTERNATIONAL NORMALISED RATIO INCREASED [None]
  - THROMBOCYTOPENIA [None]
  - METABOLIC ENCEPHALOPATHY [None]
  - ATRIAL FIBRILLATION [None]
